FAERS Safety Report 20505893 (Version 1)
Quarter: 2022Q1

REPORT INFORMATION
  Report Type: Spontaneous
  Country: CN (occurrence: CN)
  Receive Date: 20220223
  Receipt Date: 20220223
  Transmission Date: 20220423
  Serious: Yes (Life-Threatening, Other)
  Sender: FDA-Public Use
  Company Number: CN-AMGEN-CHNSP2022028670

PATIENT

DRUGS (1)
  1. PROLIA [Suspect]
     Active Substance: DENOSUMAB
     Indication: Product used for unknown indication
     Dosage: 60 MG/1 ML
     Route: 058

REACTIONS (18)
  - Aspartate aminotransferase increased [Unknown]
  - Hyperkalaemia [Unknown]
  - Drug specific antibody present [Recovered/Resolved]
  - Blood parathyroid hormone increased [Unknown]
  - Hypophosphataemia [Unknown]
  - Hypertriglyceridaemia [Unknown]
  - Atrioventricular block [Unknown]
  - Activated partial thromboplastin time prolonged [Unknown]
  - Alanine aminotransferase increased [Unknown]
  - Blood bilirubin increased [Unknown]
  - Blood thyroid stimulating hormone increased [Unknown]
  - Thyroxine free increased [Unknown]
  - White blood cell count increased [Unknown]
  - Urine leukocyte esterase positive [Unknown]
  - Hyperuricaemia [Unknown]
  - Sinus bradycardia [Unknown]
  - Arthralgia [Unknown]
  - Hypocalcaemia [Unknown]
